FAERS Safety Report 6771835-5 (Version None)
Quarter: 2010Q2

REPORT INFORMATION
  Report Type: 
  Country: None (occurrence: None)
  Receive Date: 20100616
  Receipt Date: 20100614
  Transmission Date: 20101027
  Serious: Yes (Death, Hospitalization)
  Sender: FDA-Public Use
  Company Number: US-SANOFI-AVENTIS-2010SA029453

PATIENT
  Age: 59 Year
  Sex: Male

DRUGS (8)
  1. TAXOTERE [Suspect]
     Indication: PROSTATE CANCER
     Route: 042
     Dates: start: 20100226, end: 20100226
  2. BLINDED THERAPY [Suspect]
     Indication: PROSTATE CANCER
     Route: 048
     Dates: start: 20100226
  3. PREDNISONE [Suspect]
     Indication: PROSTATE CANCER
     Route: 048
  4. DEXAMETHASONE [Suspect]
     Indication: PREMEDICATION
     Dosage: 12 HOURS, 3 HOURS AND 1 HOUR PRIOR TO DOCETAXEL INFUSION
     Route: 065
  5. GABAPENTIN [Concomitant]
     Dates: start: 20040101
  6. LIPITOR [Concomitant]
     Dates: start: 19950101
  7. METHIMAZOLE [Concomitant]
     Dates: start: 19950101
  8. NORMAL SALINE [Concomitant]
     Dates: start: 20100228, end: 20100302

REACTIONS (3)
  - DISSEMINATED INTRAVASCULAR COAGULATION [None]
  - MALIGNANT NEOPLASM PROGRESSION [None]
  - TUMOUR LYSIS SYNDROME [None]
